FAERS Safety Report 14952539 (Version 3)
Quarter: 2019Q3

REPORT INFORMATION
  Report Type: Spontaneous
  Country: US (occurrence: US)
  Receive Date: 20180530
  Receipt Date: 20190910
  Transmission Date: 20191004
  Serious: Yes (Other)
  Sender: FDA-Public Use
  Company Number: US-PFIZER INC-2018220707

PATIENT
  Age: 50 Year
  Sex: Male

DRUGS (2)
  1. LYRICA [Suspect]
     Active Substance: PREGABALIN
     Indication: PAIN
     Dosage: 100 MG, DAILY
  2. LYRICA [Suspect]
     Active Substance: PREGABALIN
     Dosage: 50 MG, 2X/DAY
     Dates: start: 20181003

REACTIONS (7)
  - Vision blurred [Unknown]
  - Burning sensation [Not Recovered/Not Resolved]
  - Hypoaesthesia [Unknown]
  - Sensory loss [Unknown]
  - Drug ineffective [Unknown]
  - Balance disorder [Unknown]
  - Cerebrovascular accident [Unknown]
